FAERS Safety Report 8820015 (Version 2)
Quarter: 2012Q4

REPORT INFORMATION
  Report Type: Report from Study
  Country: JP (occurrence: JP)
  Receive Date: 20121001
  Receipt Date: 20121130
  Transmission Date: 20130627
  Serious: Yes (Life-Threatening, Hospitalization, Other)
  Sender: FDA-Public Use
  Company Number: JP-VERTEX PHARMACEUTICAL INC.-AE-2012-004723

PATIENT
  Age: 66 Year
  Sex: Female

DRUGS (16)
  1. VX-950 (TELAPREVIR) [Suspect]
     Indication: CHRONIC HEPATITIS C
     Dosage: 2250 mg, qd
     Route: 048
     Dates: start: 20120207, end: 20120417
  2. VX-950 (TELAPREVIR) [Suspect]
     Dosage: 1500 mg, qd
     Route: 048
     Dates: start: 20120418, end: 20120419
  3. PEGINTERFERON ALFA-2B [Suspect]
     Indication: CHRONIC HEPATITIS C
     Dosage: 1.5 ?g/kg, UNK
     Route: 058
     Dates: start: 20120207, end: 20120417
  4. REBETOL [Suspect]
     Indication: CHRONIC HEPATITIS C
     Dosage: 600 mg, qd
     Route: 048
     Dates: start: 20120207, end: 20120313
  5. REBETOL [Suspect]
     Dosage: 400 mg, qd
     Route: 048
     Dates: start: 20120314, end: 20120327
  6. REBETOL [Suspect]
     Dosage: 200 mg, qd
     Route: 048
     Dates: start: 20120328, end: 20120419
  7. LEDOLPER [Suspect]
     Indication: INSOMNIA
     Dosage: 0.25 mg, qd
     Route: 048
     Dates: start: 20120423, end: 20120502
  8. BROTIZOLAM [Suspect]
     Dosage: UNK
     Route: 048
  9. LICKLE [Suspect]
     Indication: HYPOALBUMINAEMIA
     Dosage: 13.22 g, qd
     Route: 048
     Dates: start: 20120423, end: 20120426
  10. LASIX                              /00032601/ [Suspect]
     Indication: HYPOALBUMINAEMIA
     Dosage: 20 mg, qd
     Route: 048
     Dates: start: 20120420, end: 20120502
  11. ALDACTONE A [Suspect]
     Indication: HYPOALBUMINAEMIA
     Dosage: 25 mg, qd
     Route: 048
     Dates: start: 20120420, end: 20120517
  12. AMLODIPINE BESILATE [Suspect]
     Indication: HYPERTENSION
     Dosage: 5 mg, qd
     Route: 048
     Dates: start: 21020417
  13. ACETAMINOPHEN [Concomitant]
     Dosage: 2 DF, prn
     Route: 048
     Dates: start: 20120207
  14. PARIET [Concomitant]
     Dosage: 10 mg, qd
     Route: 048
     Dates: start: 20120525
  15. GASMOTIN [Concomitant]
     Dosage: 3 DF, qd
     Route: 048
     Dates: start: 20120319
  16. NAUZELIN [Concomitant]
     Dosage: 1 DF, prn
     Route: 048
     Dates: start: 20120319

REACTIONS (7)
  - Idiopathic thrombocytopenic purpura [Recovered/Resolved]
  - Hypoalbuminaemia [Recovered/Resolved]
  - Malaise [Recovered/Resolved]
  - Haemoglobin decreased [Recovered/Resolved]
  - Rash [None]
  - Pruritus [None]
  - Insomnia [None]
